FAERS Safety Report 15060007 (Version 1)
Quarter: 2018Q2

REPORT INFORMATION
  Report Type: Spontaneous
  Country: FR (occurrence: FR)
  Receive Date: 20180625
  Receipt Date: 20180625
  Transmission Date: 20180711
  Serious: Yes (Death)
  Sender: FDA-Public Use
  Company Number: FR-JNJFOC-20180630339

PATIENT
  Age: 49 Year
  Sex: Male
  Weight: 81 kg

DRUGS (2)
  1. REMICADE [Suspect]
     Active Substance: INFLIXIMAB
     Indication: SPONDYLITIS
     Route: 042
     Dates: start: 20120316, end: 20180403
  2. INFLECTRA [Suspect]
     Active Substance: INFLIXIMAB-DYYB
     Indication: SPONDYLITIS
     Route: 042
     Dates: start: 20180507, end: 20180507

REACTIONS (3)
  - Off label use [Unknown]
  - Completed suicide [Fatal]
  - Product use in unapproved indication [Unknown]

NARRATIVE: CASE EVENT DATE: 20120316
